FAERS Safety Report 24724542 (Version 1)
Quarter: 2024Q4

REPORT INFORMATION
  Report Type: Spontaneous
  Country: US (occurrence: US)
  Receive Date: 20241212
  Receipt Date: 20241212
  Transmission Date: 20250114
  Serious: Yes (Other)
  Sender: AUROBINDO
  Company Number: US-AUROBINDO-AUR-APL-2024-059478

PATIENT
  Age: 16 Year
  Sex: Male

DRUGS (18)
  1. TIGECYCLINE [Suspect]
     Active Substance: TIGECYCLINE
     Indication: Lung disorder
     Dosage: FOR 7 MONTHS
     Route: 065
     Dates: start: 201609, end: 201703
  2. TIGECYCLINE [Suspect]
     Active Substance: TIGECYCLINE
     Dosage: UNK
     Route: 065
     Dates: start: 201801
  3. IMIPENEM [Suspect]
     Active Substance: IMIPENEM
     Indication: Lung disorder
     Dosage: FOR 7 MONTHS
     Route: 065
     Dates: start: 201609, end: 201703
  4. IMIPENEM [Suspect]
     Active Substance: IMIPENEM
     Dosage: FOR 7 MONTHS
     Route: 065
     Dates: start: 201801
  5. AMIKACIN [Suspect]
     Active Substance: AMIKACIN
     Indication: Lung disorder
     Dosage: NEBULISED [MAINTENANCE PHASE]
     Route: 065
     Dates: start: 201703, end: 201901
  6. AMIKACIN [Suspect]
     Active Substance: AMIKACIN
     Dosage: NEBULISED [MAINTENANCE PHASE]
     Route: 042
     Dates: start: 201901
  7. CEFTAROLINE FOSAMIL [Concomitant]
     Active Substance: CEFTAROLINE FOSAMIL
     Indication: Lung disorder
     Dosage: UNK
     Route: 065
     Dates: start: 202001
  8. AZITHROMYCIN [Concomitant]
     Active Substance: AZITHROMYCIN
     Indication: Lung disorder
     Dosage: FOR 7 MONTHS
     Route: 048
     Dates: start: 201609
  9. AZITHROMYCIN [Concomitant]
     Active Substance: AZITHROMYCIN
     Dosage: NEBULISED [MAINTENANCE PHASE]
     Route: 065
  10. CLOFAZIMINE [Concomitant]
     Active Substance: CLOFAZIMINE
     Indication: Lung disorder
     Dosage: NEBULISED [MAINTENANCE PHASE]
     Dates: start: 201703
  11. CLOFAZIMINE [Concomitant]
     Active Substance: CLOFAZIMINE
     Dosage: UNK
     Route: 048
  12. OMADACYCLINE [Concomitant]
     Active Substance: OMADACYCLINE
     Indication: Lung disorder
     Dosage: UNK
     Route: 065
     Dates: start: 2020
  13. OMADACYCLINE [Concomitant]
     Active Substance: OMADACYCLINE
     Dosage: UNK
     Route: 048
     Dates: start: 202001
  14. OMADACYCLINE [Concomitant]
     Active Substance: OMADACYCLINE
     Dosage: UNK
     Route: 042
     Dates: start: 202001
  15. OMADACYCLINE [Concomitant]
     Active Substance: OMADACYCLINE
     Dosage: UNK
     Route: 042
     Dates: start: 202101
  16. MEROPENEM [Concomitant]
     Active Substance: MEROPENEM
     Indication: Lung disorder
     Dosage: 500 MG TWICE DAILY NEBULIZED CONTINUOUSLY
     Route: 065
     Dates: start: 202201
  17. BEDAQUILINE [Concomitant]
     Active Substance: BEDAQUILINE
     Indication: Lung disorder
     Dosage: UNK
     Route: 048
  18. AVIBACTAM SODIUM\CEFTAZIDIME [Concomitant]
     Active Substance: AVIBACTAM SODIUM\CEFTAZIDIME
     Indication: Lung disorder
     Dosage: UNK
     Route: 065
     Dates: start: 201703, end: 201901

REACTIONS (2)
  - Drug ineffective [Unknown]
  - Pyrexia [Unknown]
